FAERS Safety Report 17179641 (Version 1)
Quarter: 2019Q4

REPORT INFORMATION
  Report Type: Report from Study
  Country: US (occurrence: US)
  Receive Date: 20191219
  Receipt Date: 20191219
  Transmission Date: 20200122
  Serious: Yes (Death)
  Sender: FDA-Public Use
  Company Number: US-ROCHE-2498281

PATIENT
  Sex: Male
  Weight: 73.4 kg

DRUGS (23)
  1. DRONABINOL. [Concomitant]
     Active Substance: DRONABINOL
     Route: 048
  2. FENTANYL. [Concomitant]
     Active Substance: FENTANYL
     Dosage: 25 MCG/HR TRANDERMAL FILM
     Route: 062
  3. SODIUM CHLORIDE. [Concomitant]
     Active Substance: SODIUM CHLORIDE
     Route: 042
  4. FLOMAX [Concomitant]
     Active Substance: TAMSULOSIN HYDROCHLORIDE
     Route: 048
  5. NYSTATIN. [Concomitant]
     Active Substance: NYSTATIN
     Route: 061
  6. ENTRECTINIB [Suspect]
     Active Substance: ENTRECTINIB
     Indication: METASTASES TO LIVER
  7. ENTRECTINIB [Suspect]
     Active Substance: ENTRECTINIB
     Indication: METASTASES TO CENTRAL NERVOUS SYSTEM
  8. LIDOCAINE. [Concomitant]
     Active Substance: LIDOCAINE
  9. ZANTAC [Concomitant]
     Active Substance: RANITIDINE HYDROCHLORIDE
     Route: 048
  10. MAGNESIUM OXIDE. [Concomitant]
     Active Substance: MAGNESIUM OXIDE
     Route: 048
  11. METFORMIN [Concomitant]
     Active Substance: METFORMIN HYDROCHLORIDE
     Route: 065
  12. NYSTATIN. [Concomitant]
     Active Substance: NYSTATIN
     Route: 061
  13. ZOFRAN [Concomitant]
     Active Substance: ONDANSETRON HYDROCHLORIDE
  14. ENTRECTINIB [Suspect]
     Active Substance: ENTRECTINIB
     Indication: OESOPHAGEAL CARCINOMA
     Dosage: TAKE 3 CAPSULE(S) BY MOUTH DAILY; ONGOING: UNKNOWN
     Route: 048
  15. PREDNISONE. [Concomitant]
     Active Substance: PREDNISONE
     Route: 048
  16. PROTONIX [OMEPRAZOLE] [Concomitant]
     Active Substance: OMEPRAZOLE
     Route: 048
  17. ATORVASTATIN [Concomitant]
     Active Substance: ATORVASTATIN
     Route: 048
  18. PERCOCET [Concomitant]
     Active Substance: ACETAMINOPHEN\OXYCODONE HYDROCHLORIDE
     Route: 048
  19. PROMETHAZINE [Concomitant]
     Active Substance: PROMETHAZINE HYDROCHLORIDE
     Route: 048
  20. CHOLECALCIFEROL [Concomitant]
     Active Substance: CHOLECALCIFEROL
     Dosage: 2000 INI UNIT
     Route: 048
  21. DEXAMETHASONE. [Concomitant]
     Active Substance: DEXAMETHASONE
     Route: 048
  22. MARINOL [Concomitant]
     Active Substance: DRONABINOL
     Route: 048
  23. OXYCODONE [Concomitant]
     Active Substance: OXYCODONE

REACTIONS (1)
  - Death [Fatal]
